FAERS Safety Report 7721176-4 (Version None)
Quarter: 2011Q3

REPORT INFORMATION
  Report Type: 
  Country: None (occurrence: None)
  Receive Date: 20110831
  Receipt Date: 20110827
  Transmission Date: 20111222
  Serious: No
  Sender: FDA-Public Use
  Company Number: US-TEVA-298558USA

PATIENT
  Sex: Female
  Weight: 49.94 kg

DRUGS (2)
  1. PLAN B ONE-STEP [Suspect]
     Indication: POST COITAL CONTRACEPTION
     Dosage: 1.5 MILLIGRAM;
     Route: 048
     Dates: start: 20110821, end: 20110821
  2. INDERAL [Concomitant]
     Indication: MIGRAINE

REACTIONS (5)
  - VISION BLURRED [None]
  - PELVIC PAIN [None]
  - DIZZINESS [None]
  - MENSTRUATION IRREGULAR [None]
  - HEADACHE [None]
